FAERS Safety Report 9854920 (Version 1)
Quarter: 2014Q1

REPORT INFORMATION
  Report Type: Spontaneous
  Country: US (occurrence: US)
  Receive Date: 20140130
  Receipt Date: 20140130
  Transmission Date: 20141002
  Serious: No
  Sender: FDA-Public Use
  Company Number: US-TEVA-458599USA

PATIENT
  Sex: 0

DRUGS (3)
  1. NUVIGIL [Suspect]
     Indication: FATIGUE
  2. NUVIGIL [Suspect]
     Indication: FIBROMYALGIA
  3. NUVIGIL [Suspect]
     Indication: FEELING ABNORMAL

REACTIONS (1)
  - Off label use [Unknown]
